FAERS Safety Report 4348023-5 (Version None)
Quarter: 2004Q2

REPORT INFORMATION
  Report Type: 
  Country: None (occurrence: None)
  Receive Date: 20040422
  Receipt Date: 20040419
  Transmission Date: 20050107
  Serious: Yes (Other)
  Sender: FDA-Public Use
  Company Number: 2004209413PT

PATIENT
  Sex: Male

DRUGS (1)
  1. SOLEXA (CELOCOXIB)CAPSULE [Suspect]

REACTIONS (1)
  - LARYNGEAL OEDEMA [None]
